FAERS Safety Report 9727465 (Version 1)
Quarter: 2013Q4

REPORT INFORMATION
  Report Type: Report from Study
  Country: US (occurrence: US)
  Receive Date: 20131203
  Receipt Date: 20131203
  Transmission Date: 20140711
  Serious: Yes (Life-Threatening, Hospitalization)
  Sender: FDA-Public Use
  Company Number: US-ABBVIE-13P-163-1175191-00

PATIENT
  Age: 46 Year
  Sex: Female

DRUGS (11)
  1. HUMIRA [Suspect]
     Indication: PRODUCT USED FOR UNKNOWN INDICATION
     Dosage: DAY 1
     Dates: start: 20131106, end: 20131106
  2. HUMIRA [Suspect]
     Dosage: DAY 15
     Dates: start: 20131120, end: 20131120
  3. HUMIRA [Suspect]
     Dosage: DAY 16
     Dates: start: 20131121, end: 20131125
  4. DOCUSATE [Concomitant]
     Indication: CONSTIPATION
     Route: 048
  5. VITAMIN D3 [Concomitant]
     Indication: BONE DISORDER
  6. VITAMIN B12 [Concomitant]
     Indication: PRODUCT USED FOR UNKNOWN INDICATION
  7. PROPRANOLOL [Concomitant]
     Indication: PRODUCT USED FOR UNKNOWN INDICATION
  8. DIPHENHYDRAMINE [Concomitant]
     Indication: HYPERSENSITIVITY
  9. FLUTICASONE [Concomitant]
     Indication: PRODUCT USED FOR UNKNOWN INDICATION
  10. METACLOPRAMIDE [Concomitant]
     Indication: PRODUCT USED FOR UNKNOWN INDICATION
  11. PROCTOSOL HC [Concomitant]
     Indication: PRODUCT USED FOR UNKNOWN INDICATION

REACTIONS (7)
  - Apnoea [Recovering/Resolving]
  - Paralysis [Recovering/Resolving]
  - Hypoaesthesia [Recovering/Resolving]
  - Loss of consciousness [Recovering/Resolving]
  - Brain oedema [Recovering/Resolving]
  - Malaise [Recovering/Resolving]
  - Dyspnoea [Recovering/Resolving]
